FAERS Safety Report 18122696 (Version 1)
Quarter: 2020Q3

REPORT INFORMATION
  Report Type: Spontaneous
  Country: US (occurrence: US)
  Receive Date: 20200806
  Receipt Date: 20200806
  Transmission Date: 20201103
  Serious: Yes (Hospitalization, Other)
  Sender: FDA-Public Use
  Company Number: None

PATIENT
  Age: 70 Year
  Sex: Female
  Weight: 82.1 kg

DRUGS (8)
  1. LISINOPRIL 10 MG ORAL DAILY [Concomitant]
  2. NATEGLINIDE 120 MG ORAL THREE TIMES DAILY [Concomitant]
  3. PANTOPRAZOLE 40 MG ORAL NIGHTLY [Concomitant]
  4. ATORVASTATIN 20 MG ORAL NIGHTLY [Concomitant]
  5. INVOKANA [Suspect]
     Active Substance: CANAGLIFLOZIN
     Indication: TYPE 2 DIABETES MELLITUS
     Route: 048
  6. SYMBICORT 160?4.5 MCG/ACT INHALER 2 PUFFS ORAL TWICE DAILY AS NEEDED [Concomitant]
  7. CALCIUM CARBONATE 500 MG ORAL DAILY [Concomitant]
  8. METFORMIN 1000 MG ORAL TWICE DAILY WITH MEALS [Concomitant]

REACTIONS (1)
  - Euglycaemic diabetic ketoacidosis [None]

NARRATIVE: CASE EVENT DATE: 20200619
